FAERS Safety Report 19635244 (Version 1)
Quarter: 2021Q3

REPORT INFORMATION
  Report Type: Spontaneous
  Country: ES (occurrence: ES)
  Receive Date: 20210729
  Receipt Date: 20210729
  Transmission Date: 20211014
  Serious: Yes (Other)
  Sender: FDA-Public Use
  Company Number: ES-PFIZER INC-2021895530

PATIENT
  Age: 56 Year
  Sex: Female

DRUGS (3)
  1. GENOXAL [Suspect]
     Active Substance: CYCLOPHOSPHAMIDE
     Indication: TRIPLE NEGATIVE BREAST CANCER
     Dosage: UNK UNK, EVERY 3 WEEKS (FREQ:21 D;3 CYCLES X 21 DAYS)
     Route: 065
     Dates: start: 202003, end: 202007
  2. CARBOPLATIN. [Suspect]
     Active Substance: CARBOPLATIN
     Indication: TRIPLE NEGATIVE BREAST CANCER
     Dosage: UNK, EVERY 3 WEEKS (FREQ:21 D;3 CYCLES X 21 DAYS)
     Route: 065
     Dates: start: 202003, end: 202007
  3. PACLITAXEL HOSPIRA [Suspect]
     Active Substance: PACLITAXEL
     Indication: TRIPLE NEGATIVE BREAST CANCER
     Dosage: UNK, EVERY 3 WEEKS (FREQ:21 D;3 CYCLES X 21 DAYS)
     Route: 065
     Dates: start: 202003, end: 202007

REACTIONS (2)
  - Skin toxicity [Recovering/Resolving]
  - Neoplasm progression [Unknown]

NARRATIVE: CASE EVENT DATE: 202104
